FAERS Safety Report 4360172-4 (Version None)
Quarter: 2004Q2

REPORT INFORMATION
  Report Type: 
  Country: None (occurrence: None)
  Receive Date: 20040514
  Receipt Date: 20040504
  Transmission Date: 20050107
  Serious: Yes (Other)
  Sender: FDA-Public Use
  Company Number: STA-AE-04-MTX-184

PATIENT
  Age: 71 Year
  Sex: Female

DRUGS (5)
  1. METHOTREXATE [Suspect]
     Indication: RHEUMATOID ARTHRITIS
     Dosage: 20 MG, ORAL
     Route: 048
     Dates: end: 20030719
  2. REMICADE [Suspect]
     Indication: RHEUMATOID ARTHRITIS
     Dosage: 3 MG/KG INTRAVENOUS
     Route: 042
     Dates: start: 20030612, end: 20030719
  3. SULFASALAZINE [Concomitant]
  4. ARCOXIA [Concomitant]
  5. ORAMORPH SR [Concomitant]

REACTIONS (3)
  - CHEST PAIN [None]
  - COLLAPSE OF LUNG [None]
  - LUNG CONSOLIDATION [None]
